FAERS Safety Report 6341389-6 (Version None)
Quarter: 2009Q3

REPORT INFORMATION
  Report Type: 
  Country: None (occurrence: None)
  Receive Date: 20090901
  Receipt Date: 20090901
  Transmission Date: 20100115
  Serious: Yes (Disabling)
  Sender: FDA-Public Use
  Company Number: None

PATIENT
  Age: 69 Year
  Sex: Male
  Weight: 90.7194 kg

DRUGS (2)
  1. ZICAM COLD REMEDY NASAL GEL MATRIX INITIATIVES INC. 1 SQUIRT INTO EACH [Suspect]
     Indication: NASOPHARYNGITIS
     Dosage: 1 SQUIRT INTO EACH NOSTRIL 4X DAY NASAL
     Route: 045
     Dates: start: 20090114, end: 20090117
  2. PREDNISOLONE [Concomitant]

REACTIONS (1)
  - ANOSMIA [None]
